FAERS Safety Report 7490564-6 (Version None)
Quarter: 2011Q2

REPORT INFORMATION
  Report Type: 
  Country: None (occurrence: None)
  Receive Date: 20110512
  Receipt Date: 20110427
  Transmission Date: 20111010
  Serious: Yes (Other)
  Sender: FDA-Public Use
  Company Number: 20110355

PATIENT
  Age: 8 Year
  Sex: Male
  Weight: 36.2878 kg

DRUGS (1)
  1. EPINEPHRINE [Suspect]
     Indication: ASTHMA
     Dosage: 0.3 MG/ML X 1 PER TOTAL INTRAMUSCULAR
     Route: 030
     Dates: start: 20110419, end: 20110419

REACTIONS (3)
  - HEADACHE [None]
  - SCREAMING [None]
  - HYPERTENSION [None]
